FAERS Safety Report 4567788-0 (Version None)
Quarter: 2005Q1

REPORT INFORMATION
  Report Type: 
  Country: None (occurrence: None)
  Receive Date: 20050127
  Receipt Date: 20050111
  Transmission Date: 20050727
  Serious: Yes (Other)
  Sender: FDA-Public Use
  Company Number: S05-FRA-00215-01

PATIENT
  Age: 55 Year
  Sex: Female

DRUGS (2)
  1. SEROPRAM (CITALOPRAM HYDROBROMIDE) [Suspect]
     Dosage: 20 MG QD PO
     Route: 048
  2. POLARAMINE [Suspect]
     Dosage: 1 TABLET QD PO
     Route: 048

REACTIONS (1)
  - GLOBAL AMNESIA [None]
